FAERS Safety Report 4912954-5 (Version None)
Quarter: 2006Q1

REPORT INFORMATION
  Report Type: 
  Country: None (occurrence: None)
  Receive Date: 20060210
  Receipt Date: 20060202
  Transmission Date: 20060701
  Serious: Yes (Hospitalization)
  Sender: FDA-Public Use
  Company Number: 2006PV008049

PATIENT
  Age: 53 Year
  Sex: Male

DRUGS (11)
  1. BYETTA [Suspect]
     Indication: DIABETES MELLITUS NON-INSULIN-DEPENDENT
     Dates: start: 20060119
  2. METFORMIN [Concomitant]
  3. GLYBURIDE [Concomitant]
  4. LOTREL [Concomitant]
  5. BENICAR [Concomitant]
  6. LAMICTAL [Concomitant]
  7. XANAX [Concomitant]
  8. ASPIRIN [Concomitant]
  9. MULTIVITAMIN [Concomitant]
  10. FISH OIL [Concomitant]
  11. FLAXSEED OIL [Concomitant]

REACTIONS (1)
  - VENTRICULAR EXTRASYSTOLES [None]
